FAERS Safety Report 8545606-3 (Version None)
Quarter: 2012Q3

REPORT INFORMATION
  Report Type: 
  Country: None (occurrence: None)
  Receive Date: 20120727
  Receipt Date: 20120718
  Transmission Date: 20120928
  Serious: Yes (Other)
  Sender: FDA-Public Use
  Company Number: US-ASTELLAS-2012US006334

PATIENT

DRUGS (1)
  1. TACROLIMUS [Suspect]
     Indication: PSORIASIS
     Dosage: UNK
     Route: 061

REACTIONS (1)
  - LENTIGO [None]
